FAERS Safety Report 19149477 (Version 3)
Quarter: 2021Q2

REPORT INFORMATION
  Report Type: Report from Study
  Country: US (occurrence: US)
  Receive Date: 20210416
  Receipt Date: 20210517
  Transmission Date: 20210717
  Serious: Yes (Death, Hospitalization)
  Sender: FDA-Public Use
  Company Number: US-SEATTLE GENETICS-2021SGN01596

PATIENT
  Age: 70 Year
  Sex: Female

DRUGS (1)
  1. TUCATINIB [Suspect]
     Active Substance: TUCATINIB
     Indication: BREAST CANCER
     Dosage: 150 MG, BID
     Route: 048
     Dates: start: 20210122, end: 20210126

REACTIONS (8)
  - Muscle strength abnormal [Not Recovered/Not Resolved]
  - Dehydration [Unknown]
  - Mobility decreased [Not Recovered/Not Resolved]
  - Death [Fatal]
  - Acute respiratory failure [Unknown]
  - Malignant pleural effusion [Unknown]
  - General physical health deterioration [Not Recovered/Not Resolved]
  - Musculoskeletal chest pain [Unknown]

NARRATIVE: CASE EVENT DATE: 20210127
